FAERS Safety Report 5567115-6 (Version None)
Quarter: 2007Q4

REPORT INFORMATION
  Report Type: 
  Country: None (occurrence: None)
  Receive Date: 20071130
  Receipt Date: 20070912
  Transmission Date: 20080405
  Serious: No
  Sender: FDA-Public Use
  Company Number: US200709002240

PATIENT
  Age: 55 Year
  Sex: Female
  Weight: 83 kg

DRUGS (17)
  1. BYETTA [Suspect]
     Indication: TYPE 2 DIABETES MELLITUS
     Dosage: 5 UG, 2/D, SUBCUTANEOUS, 10 UG, 2/D, SUBCUTANEOUS, 10 UG, OTHER, SUBCUTANEOUS
     Route: 058
     Dates: start: 20070201, end: 20070401
  2. BYETTA [Suspect]
     Indication: TYPE 2 DIABETES MELLITUS
     Dosage: 5 UG, 2/D, SUBCUTANEOUS, 10 UG, 2/D, SUBCUTANEOUS, 10 UG, OTHER, SUBCUTANEOUS
     Route: 058
     Dates: start: 20070101
  3. BYETTA [Suspect]
     Indication: TYPE 2 DIABETES MELLITUS
     Dosage: 5 UG, 2/D, SUBCUTANEOUS, 10 UG, 2/D, SUBCUTANEOUS, 10 UG, OTHER, SUBCUTANEOUS
     Route: 058
     Dates: start: 20070401
  4. EXENATIDE 5MCG PEN, DISPOSABLE DEVICE (EXENATIDE PEN (5MCG)) PEN, DISP [Concomitant]
  5. EXENATIDE 10MCG PEN, DISPOSABLE DEVICE (EXENATIDE PEN (10MCG)) PEN,DIS [Concomitant]
  6. AVANDAMET [Concomitant]
  7. TRICOR [Concomitant]
  8. CRESTOR [Concomitant]
  9. ARTHROTEC [Concomitant]
  10. FELDENE [Concomitant]
  11. PREMPRO [Concomitant]
  12. CYMBALTA [Concomitant]
  13. METHOCARBAMOL [Concomitant]
  14. ULTRAM [Concomitant]
  15. AMBIEN [Concomitant]
  16. XANAX [Concomitant]
  17. MULTIVITAMIN [Concomitant]

REACTIONS (5)
  - DECREASED APPETITE [None]
  - INCORRECT DOSE ADMINISTERED [None]
  - NAUSEA [None]
  - VOMITING [None]
  - WEIGHT DECREASED [None]
